FAERS Safety Report 4545123-1 (Version None)
Quarter: 2005Q1

REPORT INFORMATION
  Report Type: 
  Country: None (occurrence: None)
  Receive Date: 20050104
  Receipt Date: 20050104
  Transmission Date: 20050727
  Serious: Yes (Hospitalization, Other)
  Sender: FDA-Public Use
  Company Number: None

PATIENT
  Sex: Male
  Weight: 118 kg

DRUGS (2)
  1. DYAZIDE [Suspect]
     Indication: HYPERTENSION
     Dosage: 75/50 0.5 -1 TAB PO QD
     Route: 048
  2. LISINOPRIL [Concomitant]

REACTIONS (1)
  - BLOOD POTASSIUM INCREASED [None]
